FAERS Safety Report 13211009 (Version 1)
Quarter: 2017Q1

REPORT INFORMATION
  Report Type: Spontaneous
  Country: US (occurrence: US)
  Receive Date: 20170209
  Receipt Date: 20170209
  Transmission Date: 20170428
  Serious: No
  Sender: FDA-Public Use
  Company Number: US-ALLERGAN-1660317US

PATIENT
  Age: 31 Year
  Sex: Male

DRUGS (5)
  1. BOTOX [Suspect]
     Active Substance: ONABOTULINUMTOXINA
     Indication: MUSCLE SPASTICITY
     Dosage: UNK, SINGLE
     Route: 030
     Dates: start: 2016, end: 2016
  2. BOTOX [Suspect]
     Active Substance: ONABOTULINUMTOXINA
     Dosage: UNK, SINGLE
     Route: 030
     Dates: start: 2008, end: 2008
  3. TIZANIDINE. [Concomitant]
     Active Substance: TIZANIDINE
     Indication: PARAPLEGIA
     Dosage: UNK
     Route: 048
     Dates: start: 2006
  4. BACLOFEN. [Concomitant]
     Active Substance: BACLOFEN
     Indication: PARAPLEGIA
     Dosage: UNK
     Route: 048
     Dates: start: 2006
  5. OXYBUTIN [Concomitant]
     Active Substance: OXYBUTYNIN
     Indication: PARAPLEGIA
     Dosage: UNK
     Route: 048
     Dates: start: 2006

REACTIONS (1)
  - Pain in extremity [Not Recovered/Not Resolved]

NARRATIVE: CASE EVENT DATE: 201606
